APPROVED DRUG PRODUCT: BUTORPHANOL TARTRATE PRESERVATIVE FREE
Active Ingredient: BUTORPHANOL TARTRATE
Strength: 1MG/ML
Dosage Form/Route: INJECTABLE;INJECTION
Application: A074620 | Product #001
Applicant: HOSPIRA INC
Approved: Jan 22, 1997 | RLD: No | RS: No | Type: DISCN